FAERS Safety Report 25120532 (Version 1)
Quarter: 2025Q1

REPORT INFORMATION
  Report Type: Report from Study
  Country: CA (occurrence: CA)
  Receive Date: 20250325
  Receipt Date: 20250325
  Transmission Date: 20250408
  Serious: Yes (Hospitalization)
  Sender: TAKEDA
  Company Number: CA-TAKEDA-2024TUS128039

PATIENT
  Age: 37 Year
  Sex: Male

DRUGS (6)
  1. VEDOLIZUMAB [Suspect]
     Active Substance: VEDOLIZUMAB
     Indication: Crohn^s disease
  2. VEDOLIZUMAB [Suspect]
     Active Substance: VEDOLIZUMAB
     Dosage: 300 MILLIGRAM, Q4WEEKS
  3. HYDROMORPHONE [Concomitant]
     Active Substance: HYDROMORPHONE
     Dosage: 6 MILLIGRAM, BID
  4. DILAUDID [Concomitant]
     Active Substance: HYDROMORPHONE HYDROCHLORIDE
     Dosage: UNK UNK, QD
  5. METFORMIN [Concomitant]
     Active Substance: METFORMIN HYDROCHLORIDE
  6. DULOXETINE [Concomitant]
     Active Substance: DULOXETINE

REACTIONS (7)
  - Diabetic foot infection [Not Recovered/Not Resolved]
  - Skin infection [Unknown]
  - Skin exfoliation [Unknown]
  - Off label use [Unknown]
  - Resorption bone increased [Unknown]
  - Cartilage injury [Unknown]
  - Tendon injury [Unknown]

NARRATIVE: CASE EVENT DATE: 20230203
